FAERS Safety Report 6260839-7 (Version None)
Quarter: 2009Q3

REPORT INFORMATION
  Report Type: 
  Country: None (occurrence: None)
  Receive Date: 20090707
  Receipt Date: 20090622
  Transmission Date: 20100115
  Serious: Yes (Other)
  Sender: FDA-Public Use
  Company Number: 2009000363

PATIENT
  Age: 74 Year
  Sex: Female
  Weight: 35 kg

DRUGS (5)
  1. ERLOTINIB (ERLOTINIB) (TABLET) (ERLOTINIB) [Suspect]
     Indication: NON-SMALL CELL LUNG CANCER
     Dosage: (100 MG, QD), ORAL
     Route: 048
     Dates: start: 20081021, end: 20081101
  2. PROTECADIN [Concomitant]
  3. MUCOSTA (REBAMIPIDE) [Concomitant]
  4. ASTOMIN (DIMEMORFAN PHOSPHATE) [Concomitant]
  5. IPD (SUPLATAST TOSILATE) [Concomitant]

REACTIONS (4)
  - DIARRHOEA [None]
  - DISEASE PROGRESSION [None]
  - HAEMOPTYSIS [None]
  - NON-SMALL CELL LUNG CANCER METASTATIC [None]
